FAERS Safety Report 4354034-6 (Version None)
Quarter: 2004Q2

REPORT INFORMATION
  Report Type: 
  Country: None (occurrence: None)
  Receive Date: 20040506
  Receipt Date: 20031121
  Transmission Date: 20050107
  Serious: No
  Sender: FDA-Public Use
  Company Number: US-GLAXOSMITHKLINE-A0440819A

PATIENT
  Age: 21 Month
  Sex: Male

DRUGS (1)
  1. AMOXIL [Suspect]
     Dosage: 7ML TWICE PER DAY
     Route: 048
     Dates: start: 20031112, end: 20031120

REACTIONS (5)
  - LACRIMATION INCREASED [None]
  - PYREXIA [None]
  - RASH GENERALISED [None]
  - RHINORRHOEA [None]
  - SWELLING FACE [None]
